FAERS Safety Report 5731771-X (Version None)
Quarter: 2008Q2

REPORT INFORMATION
  Report Type: 
  Country: None (occurrence: None)
  Receive Date: 20080508
  Receipt Date: 20080427
  Transmission Date: 20081010
  Serious: Yes (Hospitalization, Other)
  Sender: FDA-Public Use
  Company Number: BR-ROCHE-548235

PATIENT
  Age: 26 Year
  Sex: Female
  Weight: 43 kg

DRUGS (1)
  1. ROACUTAN [Suspect]
     Indication: ACNE
     Route: 048
     Dates: start: 20070101, end: 20070601

REACTIONS (7)
  - ANXIETY [None]
  - ENCEPHALITIS [None]
  - HEMIPLEGIA [None]
  - ILL-DEFINED DISORDER [None]
  - MULTIPLE SCLEROSIS [None]
  - PARALYSIS [None]
  - PATELLOFEMORAL PAIN SYNDROME [None]
